FAERS Safety Report 23169475 (Version 1)
Quarter: 2023Q4

REPORT INFORMATION
  Report Type: Spontaneous
  Country: US (occurrence: US)
  Receive Date: 20231110
  Receipt Date: 20231110
  Transmission Date: 20240110
  Serious: Yes (Death, Life-Threatening, Hospitalization, Other)
  Sender: FDA-Public Use
  Company Number: US-AJANTA-2023AJA00245

PATIENT
  Age: 39 Year
  Sex: Female

DRUGS (2)
  1. LAMOTRIGINE [Suspect]
     Active Substance: LAMOTRIGINE
     Indication: Epilepsy
  2. LAMOTRIGINE [Suspect]
     Active Substance: LAMOTRIGINE

REACTIONS (7)
  - Eosinophilic myocarditis [Fatal]
  - Hepatic necrosis [Fatal]
  - Cholangitis acute [Fatal]
  - Cardiac arrest [Fatal]
  - Disease recurrence [Fatal]
  - Drug reaction with eosinophilia and systemic symptoms [Fatal]
  - Thyroiditis [Fatal]
